FAERS Safety Report 9380895 (Version 2)
Quarter: 2013Q3

REPORT INFORMATION
  Report Type: Spontaneous
  Country: US (occurrence: US)
  Receive Date: 20130703
  Receipt Date: 20130717
  Transmission Date: 20140515
  Serious: No
  Sender: FDA-Public Use
  Company Number: US-ASTRAZENECA-2013SE41491

PATIENT
  Age: 13 Year
  Sex: Male

DRUGS (2)
  1. PULMICORT FLEXHALER [Suspect]
     Indication: ASTHMA
     Dosage: 90 MCG, 1 PUFF DAILY
     Route: 055
     Dates: start: 201305
  2. PULMICORT FLEXHALER [Suspect]
     Indication: ASTHMA
     Dosage: 15 TO 20 DOSES OF INHALER
     Route: 055

REACTIONS (2)
  - Wheezing [Unknown]
  - Intentional drug misuse [Unknown]
